FAERS Safety Report 10386013 (Version 4)
Quarter: 2015Q2

REPORT INFORMATION
  Report Type: Report from Study
  Country: JP (occurrence: JP)
  Receive Date: 20140814
  Receipt Date: 20150409
  Transmission Date: 20150821
  Serious: Yes (Hospitalization)
  Sender: FDA-Public Use
  Company Number: JP-009507513-1408JPN007182

PATIENT
  Age: 57 Year
  Sex: Male
  Weight: 85 kg

DRUGS (10)
  1. PEGINTRON [Suspect]
     Active Substance: PEGINTERFERON ALFA-2B
     Indication: HEPATIC CIRRHOSIS
     Dosage: 80 MICROGRAM, QW
     Route: 058
     Dates: start: 20121101, end: 20121121
  2. OLMETEC [Concomitant]
     Active Substance: OLMESARTAN MEDOXOMIL
     Indication: HYPERTENSION
     Dosage: 1 DF, UNK
  3. REBETOL [Suspect]
     Active Substance: RIBAVIRIN
     Dosage: 800 MG, QD
     Route: 048
     Dates: start: 20130301, end: 20130327
  4. PEGINTRON [Suspect]
     Active Substance: PEGINTERFERON ALFA-2B
     Dosage: 100 MICROGRAM, QW
     Route: 058
     Dates: start: 20130502, end: 20130613
  5. REBETOL [Suspect]
     Active Substance: RIBAVIRIN
     Dosage: 200 MG, QD
     Route: 048
     Dates: start: 20130411, end: 20130604
  6. REBETOL [Suspect]
     Active Substance: RIBAVIRIN
     Dosage: 600 MG, QD
     Route: 048
     Dates: start: 20130328, end: 20130410
  7. PEGINTRON [Suspect]
     Active Substance: PEGINTERFERON ALFA-2B
     Dosage: 100 MICROGRAM, QW
     Route: 058
     Dates: start: 20121128, end: 20130102
  8. PEGINTRON [Suspect]
     Active Substance: PEGINTERFERON ALFA-2B
     Dosage: 120 MICROGRAM, QW
     Route: 058
     Dates: start: 20130109, end: 20130327
  9. REBETOL [Suspect]
     Active Substance: RIBAVIRIN
     Indication: HEPATIC CIRRHOSIS
     Dosage: 1000 MG, QD
     Route: 048
     Dates: start: 20121101, end: 20130228
  10. REBETOL [Suspect]
     Active Substance: RIBAVIRIN
     Dosage: 200 MG, QOD (ONCE EVERY OTHER DAY)
     Route: 048
     Dates: start: 20130605, end: 20130619

REACTIONS (11)
  - Pyrexia [Recovered/Resolved]
  - Neutrophil count decreased [Recovering/Resolving]
  - Angina pectoris [Recovering/Resolving]
  - Lymphocyte count decreased [Recovering/Resolving]
  - Platelet count decreased [Recovering/Resolving]
  - Abdominal pain upper [Recovered/Resolved]
  - Anaemia [Recovered/Resolved]
  - Liver disorder [Not Recovered/Not Resolved]
  - Hypothyroidism [Unknown]
  - Myocardial infarction [Recovering/Resolving]
  - Rash [Recovered/Resolved]

NARRATIVE: CASE EVENT DATE: 20121102
